FAERS Safety Report 6317152-9 (Version None)
Quarter: 2009Q3

REPORT INFORMATION
  Report Type: 
  Country: None (occurrence: None)
  Receive Date: 20090819
  Receipt Date: 20090817
  Transmission Date: 20100115
  Serious: Yes (Hospitalization)
  Sender: FDA-Public Use
  Company Number: WWISSUE-324

PATIENT
  Sex: Female
  Weight: 77.5651 kg

DRUGS (3)
  1. PREDNISONE [Suspect]
     Dosage: 5MG, ONCE A DAY/ORAL
     Route: 048
     Dates: start: 20090501, end: 20090504
  2. CIPRO [Concomitant]
  3. DILTIAZEM HCL E.R. CAPSULES [Concomitant]

REACTIONS (15)
  - ABDOMINAL DISCOMFORT [None]
  - ALOPECIA [None]
  - ARTHRALGIA [None]
  - BLOOD PRESSURE INCREASED [None]
  - DECREASED APPETITE [None]
  - DEHYDRATION [None]
  - DIARRHOEA [None]
  - DIVERTICULITIS [None]
  - HEADACHE [None]
  - NAUSEA [None]
  - POLYURIA [None]
  - RENAL PAIN [None]
  - TREMOR [None]
  - URINARY TRACT INFECTION [None]
  - WEIGHT DECREASED [None]
